FAERS Safety Report 16879411 (Version 4)
Quarter: 2020Q2

REPORT INFORMATION
  Report Type: Spontaneous
  Country: JP (occurrence: JP)
  Receive Date: 20191003
  Receipt Date: 20200519
  Transmission Date: 20200713
  Serious: Yes (Other)
  Sender: FDA-Public Use
  Company Number: JP-AMGEN-JPNSP2019114119

PATIENT
  Age: 59 Year
  Sex: Female
  Weight: 60 kg

DRUGS (2)
  1. ENBREL [Suspect]
     Active Substance: ETANERCEPT
     Indication: RHEUMATOID ARTHRITIS
     Dosage: 50 MG, WEEKLY
     Route: 058
     Dates: start: 20190524, end: 20190830
  2. METHOTREXATE. [Concomitant]
     Active Substance: METHOTREXATE
     Dosage: 8 MG, WEEKLY
     Dates: start: 20190725, end: 20190919

REACTIONS (3)
  - Rheumatoid factor increased [Recovering/Resolving]
  - Drug ineffective [Unknown]
  - Matrix metalloproteinase-3 increased [Recovering/Resolving]

NARRATIVE: CASE EVENT DATE: 20190621
